FAERS Safety Report 7546280-5 (Version None)
Quarter: 2011Q2

REPORT INFORMATION
  Report Type: 
  Country: None (occurrence: None)
  Receive Date: 20110614
  Receipt Date: 20040528
  Transmission Date: 20111010
  Serious: Yes (Hospitalization)
  Sender: FDA-Public Use
  Company Number: PHFR2004GB01278

PATIENT
  Sex: Female

DRUGS (2)
  1. RISPERIDONE [Concomitant]
  2. CLOZAPINE [Suspect]
     Indication: SCHIZOPHRENIA
     Dosage: 625 MG/DAY
     Route: 048
     Dates: start: 20020911

REACTIONS (13)
  - APPENDICITIS [None]
  - ABDOMINAL PAIN [None]
  - NEUTROPHIL COUNT INCREASED [None]
  - POST PROCEDURAL COMPLICATION [None]
  - WEIGHT DECREASED [None]
  - PALLOR [None]
  - RED BLOOD CELL SEDIMENTATION RATE INCREASED [None]
  - VOMITING [None]
  - CONSTIPATION [None]
  - DECREASED APPETITE [None]
  - MALAISE [None]
  - WHITE BLOOD CELL COUNT INCREASED [None]
  - PLATELET COUNT INCREASED [None]
